FAERS Safety Report 25476028 (Version 1)
Quarter: 2025Q2

REPORT INFORMATION
  Report Type: Spontaneous
  Country: US (occurrence: US)
  Receive Date: 20250625
  Receipt Date: 20250625
  Transmission Date: 20250716
  Serious: No
  Sender: ROCHE
  Company Number: US-ROCHE-10000319588

PATIENT
  Sex: Female

DRUGS (2)
  1. AVASTIN [Suspect]
     Active Substance: BEVACIZUMAB
     Indication: Macular degeneration
     Dosage: ONGOING, STRENGTH:25MG/ML
     Route: 050
     Dates: start: 202203
  2. AVASTIN [Suspect]
     Active Substance: BEVACIZUMAB
     Indication: Vitreous haemorrhage

REACTIONS (2)
  - Off label use [Unknown]
  - No adverse event [Unknown]
